FAERS Safety Report 9346998 (Version 1)
Quarter: 2013Q2

REPORT INFORMATION
  Report Type: Spontaneous
  Country: US (occurrence: US)
  Receive Date: 20130613
  Receipt Date: 20130613
  Transmission Date: 20140414
  Serious: Yes (Death, Hospitalization)
  Sender: FDA-Public Use
  Company Number: PHHY2013US060127

PATIENT
  Age: 28 Year
  Sex: Male

DRUGS (5)
  1. ALPRAZOLAM [Suspect]
  2. HEROIN [Suspect]
  3. VALPROIC ACID [Concomitant]
     Indication: BIPOLAR DISORDER
     Dosage: 500 MG, BID
  4. VALPROIC ACID [Concomitant]
     Dosage: 1500 MG/DAY
  5. ESCITALOPRAM [Concomitant]
     Indication: BIPOLAR DISORDER
     Dosage: 10 MG DAILY

REACTIONS (13)
  - Drug dependence [Fatal]
  - Intentional overdose [Fatal]
  - Loss of consciousness [Recovering/Resolving]
  - Cyanosis [Recovering/Resolving]
  - Drooling [Recovering/Resolving]
  - Central nervous system lesion [Recovering/Resolving]
  - Dyskinesia [Recovering/Resolving]
  - Dysgraphia [Unknown]
  - Balance disorder [Unknown]
  - Chorea [Unknown]
  - Bradykinesia [Unknown]
  - Dystonia [Unknown]
  - Brain injury [Unknown]
